FAERS Safety Report 18119268 (Version 1)
Quarter: 2020Q3

REPORT INFORMATION
  Report Type: Spontaneous
  Country: US (occurrence: US)
  Receive Date: 20200806
  Receipt Date: 20200806
  Transmission Date: 20201103
  Serious: Yes (Other)
  Sender: FDA-Public Use
  Company Number: None

PATIENT
  Age: 74 Year
  Sex: Female
  Weight: 72.57 kg

DRUGS (15)
  1. CAPECITABINE 500MG AND 150MG [Suspect]
     Active Substance: CAPECITABINE
     Indication: NEOPLASM MALIGNANT
     Dosage: QUANTITY:12 DF DOSAGE FORM;OTHER FREQUENCY:6 TABLETS AM AND 6;?
     Route: 048
     Dates: start: 20200702, end: 20200715
  2. OMEPRAZOLE DR [Concomitant]
     Active Substance: OMEPRAZOLE
  3. ALBUTEROL SULFATE. [Concomitant]
     Active Substance: ALBUTEROL SULFATE
  4. RESTASIS [Concomitant]
     Active Substance: CYCLOSPORINE
  5. OXYBUTYNIN CHLORIDE. [Concomitant]
     Active Substance: OXYBUTYNIN CHLORIDE
  6. CALCIUM [Concomitant]
     Active Substance: CALCIUM
  7. FISH OIL [Concomitant]
     Active Substance: FISH OIL
  8. MULTIVITAMIN [Concomitant]
     Active Substance: VITAMINS
  9. ATORVASTATIN [Concomitant]
     Active Substance: ATORVASTATIN
  10. LISINOPRIL. [Concomitant]
     Active Substance: LISINOPRIL
  11. TROPOL XL [Concomitant]
  12. GLIPIDZIDE [Concomitant]
  13. JARDIANCE [Concomitant]
     Active Substance: EMPAGLIFLOZIN
  14. ASA [Concomitant]
     Active Substance: ASPIRIN
  15. PROAIR HFA [Concomitant]
     Active Substance: ALBUTEROL SULFATE

REACTIONS (10)
  - Diarrhoea [None]
  - Oropharyngeal pain [None]
  - Weight decreased [None]
  - Muscle spasms [None]
  - Flatulence [None]
  - Inadequate diet [None]
  - Feeding disorder [None]
  - Vocal cord disorder [None]
  - Dehydration [None]
  - Lip blister [None]

NARRATIVE: CASE EVENT DATE: 20200712
